FAERS Safety Report 23874323 (Version 1)
Quarter: 2024Q2

REPORT INFORMATION
  Report Type: Spontaneous
  Country: US (occurrence: US)
  Receive Date: 20240520
  Receipt Date: 20240520
  Transmission Date: 20240716
  Serious: Yes (Other)
  Sender: FDA-Public Use
  Company Number: US-PFIZER INC-2021338857

PATIENT
  Age: 81 Year
  Sex: Male
  Weight: 94.35 kg

DRUGS (1)
  1. VYNDAMAX [Suspect]
     Active Substance: TAFAMIDIS
     Indication: Acquired ATTR amyloidosis
     Dosage: 61 MG, 1X/DAY (61MG 1 PILL BY MOUTH ONCE A DAY)
     Route: 048

REACTIONS (1)
  - Diabetes mellitus [Unknown]
